FAERS Safety Report 4768876-6 (Version None)
Quarter: 2005Q3

REPORT INFORMATION
  Report Type: 
  Country: None (occurrence: None)
  Receive Date: 20050914
  Receipt Date: 20050603
  Transmission Date: 20060218
  Serious: Yes (Hospitalization)
  Sender: FDA-Public Use
  Company Number: US-MERCK-0506USA00850

PATIENT
  Age: 61 Year
  Sex: Male
  Weight: 95 kg

DRUGS (29)
  1. VIOXX [Suspect]
     Indication: RHEUMATOID ARTHRITIS
     Route: 048
     Dates: start: 19990617, end: 20040930
  2. METHOTREXATE [Concomitant]
     Indication: RHEUMATOID ARTHRITIS
     Route: 065
     Dates: start: 20000110, end: 20020317
  3. NEURONTIN [Concomitant]
     Indication: COMPLEX REGIONAL PAIN SYNDROME
     Route: 065
     Dates: start: 20000131, end: 20031206
  4. NEURONTIN [Concomitant]
     Indication: RHEUMATOID ARTHRITIS
     Route: 065
     Dates: start: 20000131, end: 20031206
  5. ACETAMINOPHEN [Concomitant]
     Indication: COMPLEX REGIONAL PAIN SYNDROME
     Route: 065
     Dates: start: 20000101, end: 20031201
  6. ACETAMINOPHEN [Concomitant]
     Indication: ANALGESIC EFFECT
     Route: 065
     Dates: start: 20000101, end: 20031201
  7. PREDNISONE [Concomitant]
     Indication: COMPLEX REGIONAL PAIN SYNDROME
     Route: 065
     Dates: start: 20010413, end: 20031112
  8. PREDNISONE [Concomitant]
     Indication: RHEUMATOID ARTHRITIS
     Route: 065
     Dates: start: 20010413, end: 20031112
  9. MOBIC [Concomitant]
     Route: 065
     Dates: start: 20011004, end: 20011013
  10. GLUCOPHAGE [Concomitant]
     Indication: DIABETES MELLITUS
     Route: 065
  11. PRILOSEC [Concomitant]
     Indication: GASTROOESOPHAGEAL REFLUX DISEASE
     Route: 065
  12. PREVACID [Concomitant]
     Indication: GASTROOESOPHAGEAL REFLUX DISEASE
     Route: 065
  13. ACCUPRIL [Concomitant]
     Indication: HYPERTENSION
     Route: 065
     Dates: start: 20000101
  14. DILTIAZEM MALATE [Concomitant]
     Indication: HYPERTENSION
     Route: 065
  15. LISINOPRIL [Concomitant]
     Indication: HYPERTENSION
     Route: 065
  16. AMITRIPTYLINE HYDROCHLORIDE [Concomitant]
     Indication: GENERALISED ANXIETY DISORDER
     Route: 065
     Dates: start: 20010601, end: 20030701
  17. AMITRIPTYLINE HYDROCHLORIDE [Concomitant]
     Indication: PANIC DISORDER
     Route: 065
     Dates: start: 20010601, end: 20030701
  18. ZOCOR [Concomitant]
     Indication: BLOOD CHOLESTEROL INCREASED
     Route: 048
     Dates: start: 20000101
  19. GEMFIBROZIL [Concomitant]
     Indication: BLOOD CHOLESTEROL INCREASED
     Route: 065
  20. NIASPAN [Concomitant]
     Indication: BLOOD CHOLESTEROL INCREASED
     Route: 065
  21. HUMULIN [Concomitant]
     Indication: DIABETES MELLITUS
     Route: 065
  22. ALBUTEROL [Concomitant]
     Route: 065
  23. TUSSIONEX (CHLORPHENIRAMINE POLISTIREX (+) HYDROCODONE POLISTIREX) [Concomitant]
     Route: 065
  24. METRONIDAZOLE [Concomitant]
     Route: 065
  25. TETRACYCLINE [Concomitant]
     Route: 065
  26. AXERT [Concomitant]
     Route: 065
  27. AMBIEN [Concomitant]
     Route: 065
  28. CEPHALEXIN [Concomitant]
     Route: 065
  29. LEVAQUIN [Concomitant]
     Route: 065

REACTIONS (6)
  - CHEST PAIN [None]
  - DEPRESSION [None]
  - GENERALISED ANXIETY DISORDER [None]
  - MYOCARDIAL INFARCTION [None]
  - PANIC DISORDER [None]
  - POSTOPERATIVE INFECTION [None]
